FAERS Safety Report 4285184-0 (Version None)
Quarter: 2004Q1

REPORT INFORMATION
  Report Type: 
  Country: None (occurrence: None)
  Receive Date: 20040204
  Receipt Date: 20040127
  Transmission Date: 20041129
  Serious: Yes (Other)
  Sender: FDA-Public Use
  Company Number: FR-ROCHE-357273

PATIENT
  Age: 20 Year
  Sex: Female

DRUGS (4)
  1. ROACCUTANE [Suspect]
     Indication: DRUG USE FOR UNKNOWN INDICATION
     Dosage: IT WAS REPORTED THAT THE PATIENT WAS TREATED WITH ISOTRETINOIN FOR 9 MONTHS.
     Route: 065
  2. DIANE [Concomitant]
     Indication: CONTRACEPTION
  3. ACETAMINOPHEN [Concomitant]
  4. CORTICOSTEROID [Concomitant]
     Indication: ECZEMA

REACTIONS (1)
  - HAEMANGIOMA [None]
